FAERS Safety Report 25641357 (Version 1)
Quarter: 2025Q3

REPORT INFORMATION
  Report Type: Spontaneous
  Country: IN (occurrence: IN)
  Receive Date: 20250804
  Receipt Date: 20250804
  Transmission Date: 20251020
  Serious: Yes (Hospitalization)
  Sender: MYLAN
  Company Number: IN-MYLANLABS-2025M1065775

PATIENT
  Age: 70 Year
  Sex: Female

DRUGS (20)
  1. TRANEXAMIC ACID [Suspect]
     Active Substance: TRANEXAMIC ACID
     Indication: Arteriovenous fistula site haemorrhage
     Dates: start: 20250218, end: 20250218
  2. TRANEXAMIC ACID [Suspect]
     Active Substance: TRANEXAMIC ACID
     Dates: start: 20250218, end: 20250218
  3. TRANEXAMIC ACID [Suspect]
     Active Substance: TRANEXAMIC ACID
     Route: 042
     Dates: start: 20250218, end: 20250218
  4. TRANEXAMIC ACID [Suspect]
     Active Substance: TRANEXAMIC ACID
     Route: 042
     Dates: start: 20250218, end: 20250218
  5. TRANEXAMIC ACID [Suspect]
     Active Substance: TRANEXAMIC ACID
     Dosage: 500 MILLIGRAM, Q8H
     Dates: start: 20250218, end: 202502
  6. TRANEXAMIC ACID [Suspect]
     Active Substance: TRANEXAMIC ACID
     Dosage: 500 MILLIGRAM, Q8H
     Dates: start: 20250218, end: 202502
  7. TRANEXAMIC ACID [Suspect]
     Active Substance: TRANEXAMIC ACID
     Dosage: 500 MILLIGRAM, Q8H
     Route: 042
     Dates: start: 20250218, end: 202502
  8. TRANEXAMIC ACID [Suspect]
     Active Substance: TRANEXAMIC ACID
     Dosage: 500 MILLIGRAM, Q8H
     Route: 042
     Dates: start: 20250218, end: 202502
  9. TRANEXAMIC ACID [Suspect]
     Active Substance: TRANEXAMIC ACID
     Dates: start: 20250220, end: 20250220
  10. TRANEXAMIC ACID [Suspect]
     Active Substance: TRANEXAMIC ACID
     Dates: start: 20250220, end: 20250220
  11. TRANEXAMIC ACID [Suspect]
     Active Substance: TRANEXAMIC ACID
     Route: 042
     Dates: start: 20250220, end: 20250220
  12. TRANEXAMIC ACID [Suspect]
     Active Substance: TRANEXAMIC ACID
     Route: 042
     Dates: start: 20250220, end: 20250220
  13. TRANEXAMIC ACID [Suspect]
     Active Substance: TRANEXAMIC ACID
     Dosage: 500 MILLIGRAM, Q8H
     Dates: start: 20250220, end: 202502
  14. TRANEXAMIC ACID [Suspect]
     Active Substance: TRANEXAMIC ACID
     Dosage: 500 MILLIGRAM, Q8H
     Dates: start: 20250220, end: 202502
  15. TRANEXAMIC ACID [Suspect]
     Active Substance: TRANEXAMIC ACID
     Dosage: 500 MILLIGRAM, Q8H
     Route: 042
     Dates: start: 20250220, end: 202502
  16. TRANEXAMIC ACID [Suspect]
     Active Substance: TRANEXAMIC ACID
     Dosage: 500 MILLIGRAM, Q8H
     Route: 042
     Dates: start: 20250220, end: 202502
  17. TRANEXAMIC ACID [Suspect]
     Active Substance: TRANEXAMIC ACID
  18. TRANEXAMIC ACID [Suspect]
     Active Substance: TRANEXAMIC ACID
     Route: 042
  19. TRANEXAMIC ACID [Suspect]
     Active Substance: TRANEXAMIC ACID
  20. TRANEXAMIC ACID [Suspect]
     Active Substance: TRANEXAMIC ACID
     Route: 042

REACTIONS (4)
  - Myoclonus [Recovered/Resolved]
  - Generalised tonic-clonic seizure [Recovered/Resolved]
  - Loss of consciousness [Recovered/Resolved]
  - Off label use [Unknown]

NARRATIVE: CASE EVENT DATE: 20250218
